FAERS Safety Report 15551248 (Version 1)
Quarter: 2018Q4

REPORT INFORMATION
  Report Type: Report from Study
  Country: CA (occurrence: CA)
  Receive Date: 20181025
  Receipt Date: 20181025
  Transmission Date: 20190205
  Serious: Yes (Death, Other)
  Sender: FDA-Public Use
  Company Number: CA-PFIZER INC-2018433992

PATIENT
  Age: 34 Year
  Sex: Male

DRUGS (8)
  1. METHANOL [Suspect]
     Active Substance: METHYL ALCOHOL
     Dosage: UNK
     Route: 050
  2. METHOTRIMEPRAZINE [LEVOMEPROMAZINE] [Suspect]
     Active Substance: LEVOMEPROMAZINE
     Dosage: UNK
     Route: 050
  3. OLANZAPINE. [Suspect]
     Active Substance: OLANZAPINE
     Dosage: UNK
     Route: 050
  4. ALCOHOL. [Suspect]
     Active Substance: ALCOHOL
     Dosage: UNK
     Route: 048
  5. CODEINE [Suspect]
     Active Substance: CODEINE
     Dosage: UNK
     Route: 048
  6. DIAZEPAM. [Suspect]
     Active Substance: DIAZEPAM
     Dosage: UNK
     Route: 048
  7. STODAL SIROP [Suspect]
     Active Substance: HOMEOPATHICS
     Dosage: UNK
     Route: 045
  8. ACETONE [Suspect]
     Active Substance: ACETONE
     Dosage: UNK
     Route: 045

REACTIONS (3)
  - Chemical poisoning [Fatal]
  - Toxicity to various agents [Fatal]
  - Substance abuse [Fatal]
